FAERS Safety Report 8182973-7 (Version None)
Quarter: 2012Q1

REPORT INFORMATION
  Report Type: 
  Country: None (occurrence: None)
  Receive Date: 20120305
  Receipt Date: 20111215
  Transmission Date: 20120608
  Serious: No
  Sender: FDA-Public Use
  Company Number: US-BRISTOL-MYERS SQUIBB COMPANY-16298911

PATIENT
  Sex: Male

DRUGS (2)
  1. KOMBIGLYZE XR [Suspect]
  2. JANUMET [Suspect]

REACTIONS (1)
  - OEDEMA PERIPHERAL [None]
